FAERS Safety Report 10005486 (Version 2)
Quarter: 2014Q1

REPORT INFORMATION
  Report Type: Report from Study
  Country: AR (occurrence: AR)
  Receive Date: 20140313
  Receipt Date: 20140325
  Transmission Date: 20141002
  Serious: Yes (Other)
  Sender: FDA-Public Use
  Company Number: AR-ROCHE-1363186

PATIENT
  Sex: Female

DRUGS (3)
  1. XOLAIR [Suspect]
     Indication: ASTHMA
     Dosage: 4 AMPOULES
     Route: 058
     Dates: start: 201303
  2. XOLAIR [Suspect]
     Dosage: 3 AMPOULES (DOSE) PER MONTH
     Route: 058
  3. XOLAIR [Suspect]
     Dosage: 5 AMPOULES (DOSE) PER MONTH
     Route: 058

REACTIONS (5)
  - Blood immunoglobulin E increased [Unknown]
  - Increased viscosity of nasal secretion [Unknown]
  - Malaise [Unknown]
  - Pain [Unknown]
  - Incorrect dose administered [Unknown]
